FAERS Safety Report 4394119-1 (Version None)
Quarter: 2004Q3

REPORT INFORMATION
  Report Type: 
  Country: None (occurrence: None)
  Receive Date: 20040706
  Receipt Date: 20040626
  Transmission Date: 20050211
  Serious: Yes (Other)
  Sender: FDA-Public Use
  Company Number: 2004-06-2202

PATIENT
  Age: 49 Year
  Sex: Male

DRUGS (2)
  1. RIBAVIRIN [Suspect]
     Indication: HEPATITIS C
     Dosage: 1000 TIW ORAL
     Route: 048
  2. INTERFERON ALFA-2B [Suspect]
     Indication: HEPATITIS C
     Dosage: 3 MU TIW SUBCUTANEOUS
     Route: 058

REACTIONS (2)
  - DISEASE RECURRENCE [None]
  - FACIAL PALSY [None]
